FAERS Safety Report 25772608 (Version 1)
Quarter: 2025Q3

REPORT INFORMATION
  Report Type: Spontaneous
  Country: US (occurrence: US)
  Receive Date: 20250908
  Receipt Date: 20250908
  Transmission Date: 20251020
  Serious: Yes (Other)
  Sender: Teyro Labs
  Company Number: US-TEYRO-2024-TY-000434

PATIENT
  Age: 59 Year
  Sex: Female

DRUGS (10)
  1. GEMCITABINE [Suspect]
     Active Substance: GEMCITABINE
     Indication: Ovarian epithelial cancer
     Route: 042
  2. GEMCITABINE [Suspect]
     Active Substance: GEMCITABINE
     Route: 042
  3. PLOCABULIN [Suspect]
     Active Substance: PLOCABULIN
     Indication: Ovarian epithelial cancer
     Route: 042
  4. PLOCABULIN [Suspect]
     Active Substance: PLOCABULIN
     Route: 042
  5. PLOCABULIN [Suspect]
     Active Substance: PLOCABULIN
     Route: 042
  6. PLOCABULIN [Suspect]
     Active Substance: PLOCABULIN
     Route: 042
  7. PLOCABULIN [Suspect]
     Active Substance: PLOCABULIN
     Route: 042
  8. PLOCABULIN [Suspect]
     Active Substance: PLOCABULIN
     Route: 042
  9. PLOCABULIN [Suspect]
     Active Substance: PLOCABULIN
     Route: 042
  10. PLOCABULIN [Suspect]
     Active Substance: PLOCABULIN
     Route: 042

REACTIONS (1)
  - Therapy partial responder [Unknown]
